FAERS Safety Report 12549698 (Version 2)
Quarter: 2016Q3

REPORT INFORMATION
  Report Type: Spontaneous
  Country: FR (occurrence: FR)
  Receive Date: 20160712
  Receipt Date: 20160714
  Transmission Date: 20161109
  Serious: Yes (Death)
  Sender: FDA-Public Use
  Company Number: FR-PFIZER INC-2016323823

PATIENT
  Age: 61 Year
  Sex: Female

DRUGS (2)
  1. SUTENT [Suspect]
     Active Substance: SUNITINIB MALATE
     Indication: CLEAR CELL RENAL CELL CARCINOMA
     Dosage: 50 MG, 1X/DAY
     Dates: start: 20160502, end: 20160513
  2. HYDROCORTISONE. [Suspect]
     Active Substance: HYDROCORTISONE
     Indication: ADRENAL INSUFFICIENCY
     Dosage: UNK
     Route: 048
     Dates: start: 201601

REACTIONS (12)
  - Pyrexia [Fatal]
  - Hyponatraemia [Fatal]
  - Hyperkalaemia [Fatal]
  - Renal failure [Fatal]
  - Haemoconcentration [Fatal]
  - Disseminated intravascular coagulation [Fatal]
  - General physical health deterioration [Fatal]
  - Diarrhoea [Fatal]
  - Hypoglycaemia [Fatal]
  - Hypotension [Fatal]
  - Adrenocortical insufficiency acute [Fatal]
  - Coma [Fatal]

NARRATIVE: CASE EVENT DATE: 20160509
